FAERS Safety Report 7512792-3 (Version None)
Quarter: 2011Q2

REPORT INFORMATION
  Report Type: 
  Country: None (occurrence: None)
  Receive Date: 20110531
  Receipt Date: 20110519
  Transmission Date: 20111010
  Serious: Yes (Death)
  Sender: FDA-Public Use
  Company Number: B0720273A

PATIENT
  Sex: Male

DRUGS (4)
  1. ARIXTRA [Suspect]
     Dosage: 7.5MG PER DAY
     Route: 058
     Dates: start: 20110306, end: 20110306
  2. LOVENOX [Suspect]
     Dosage: .7ML PER DAY
     Route: 058
     Dates: start: 20110305, end: 20110305
  3. ZOPICLONE [Concomitant]
  4. OXAZEPAM [Concomitant]

REACTIONS (5)
  - HAEMOGLOBIN DECREASED [None]
  - COAGULOPATHY [None]
  - SHOCK HAEMORRHAGIC [None]
  - CARDIO-RESPIRATORY ARREST [None]
  - HAEMATOMA [None]
